FAERS Safety Report 11253195 (Version 2)
Quarter: 2015Q3

REPORT INFORMATION
  Report Type: Spontaneous
  Country: US (occurrence: None)
  Receive Date: 20150707
  Receipt Date: 20150716
  Transmission Date: 20151125
  Serious: Yes (Hospitalization, Other)
  Sender: FDA-Public Use
  Company Number: 1713747-2015-999188

PATIENT
  Age: 73 Year
  Sex: Female

DRUGS (30)
  1. XANEX [Concomitant]
  2. CARDIZEM [Concomitant]
     Active Substance: DILTIAZEM HYDROCHLORIDE
  3. PROCRIT [Concomitant]
     Active Substance: ERYTHROPOIETIN
  4. CLONIDINE. [Concomitant]
     Active Substance: CLONIDINE
  5. MORPHINE [Concomitant]
     Active Substance: MORPHINE
  6. OXYCODONE-ACETAMINOPHEN [Concomitant]
     Active Substance: ACETAMINOPHEN\OXYCODONE HYDROCHLORIDE
  7. VITAMIN B COMPLEX [Concomitant]
     Active Substance: CYANOCOBALAMIN\DEXPANTHENOL\NIACINAMIDE\PYRIDOXINE HYDROCHLORIDE\RIBOFLAVIN 5^-PHOSPHATE SODIUM\THIAMINE HYDROCHLORIDE\VITAMIN B COMPLEX
  8. THERA M [Concomitant]
  9. SODIUM BICARBONATE. [Concomitant]
     Active Substance: SODIUM BICARBONATE
  10. EPOETIN ALFA [Concomitant]
     Active Substance: ERYTHROPOIETIN
  11. DEFLEX PD SOLUTION [Concomitant]
  12. RENVELA [Concomitant]
     Active Substance: SEVELAMER CARBONATE
  13. LASIX [Concomitant]
     Active Substance: FUROSEMIDE
  14. NS CARRIER FLUID [Concomitant]
  15. VITAMIN [Concomitant]
     Active Substance: VITAMINS
  16. ALBUMIN HUMAN [Concomitant]
     Active Substance: ALBUMIN (HUMAN)
  17. ATORVASTATIN [Concomitant]
     Active Substance: ATORVASTATIN
  18. VANCOMYCIN [Concomitant]
     Active Substance: VANCOMYCIN
  19. ZOLPIDEM [Concomitant]
     Active Substance: ZOLPIDEM\ZOLPIDEM TARTRATE
  20. PERCOCET [Concomitant]
     Active Substance: ACETAMINOPHEN\OXYCODONE HYDROCHLORIDE
  21. ULTRAM [Concomitant]
     Active Substance: TRAMADOL HYDROCHLORIDE
  22. COREG [Concomitant]
     Active Substance: CARVEDILOL
  23. SODIUM CHLORIDE. [Concomitant]
     Active Substance: SODIUM CHLORIDE
  24. ZOFRAN [Concomitant]
     Active Substance: ONDANSETRON HYDROCHLORIDE
  25. OMEGA-3 POLYSATURATED FATTY ACIDS [Concomitant]
  26. VITAMIN D3 [Concomitant]
     Active Substance: CHOLECALCIFEROL
  27. DELFLEX [Suspect]
     Active Substance: CALCIUM CHLORIDE\DEXTROSE MONOHYDRATE\MAGNESIUM CHLORIDE\SODIUM CHLORIDE\SODIUM LACTATE
     Indication: PERITONEAL DIALYSIS
     Route: 033
  28. LIBERTY CYCLER CASSETTE [Concomitant]
     Active Substance: DEVICE
  29. COLACE [Concomitant]
     Active Substance: DOCUSATE SODIUM
  30. FERROUS SULFATE [Concomitant]
     Active Substance: FERROUS SULFATE\FERROUS SULFATE, DRIED

REACTIONS (6)
  - Cardiac failure congestive [None]
  - Urinary tract infection [None]
  - Hypervolaemia [None]
  - Dyspnoea [None]
  - Pulmonary congestion [None]
  - Atrial fibrillation [None]

NARRATIVE: CASE EVENT DATE: 20150611
